FAERS Safety Report 8715230 (Version 4)
Quarter: 2012Q4

REPORT INFORMATION
  Report Type: 
  Country: IT (occurrence: DE)
  Receive Date: 20120809
  Receipt Date: 20121206
  Transmission Date: 20130627
  Serious: Yes (Other)
  Sender: FDA-Public Use
  Company Number: DE-FRI-1000037693

PATIENT
  Age: 40 Year
  Sex: Female

DRUGS (2)
  1. FOSFOMYCIN [Suspect]
     Indication: URINARY TRACT INFECTION
     Dosage: 1 DF
     Route: 048
     Dates: start: 20120719, end: 20120721
  2. AMITRIPTYLINE [Concomitant]
     Indication: SPINAL PAIN
     Dosage: 50 mg

REACTIONS (2)
  - Overdose [Recovered/Resolved]
  - Embolism venous [Recovering/Resolving]
